FAERS Safety Report 8766675 (Version 1)
Quarter: 2012Q4

REPORT INFORMATION
  Report Type: 
  Country: US (occurrence: US)
  Receive Date: 20120904
  Receipt Date: 20120904
  Transmission Date: 20130627
  Serious: No
  Sender: FDA-Public Use
  Company Number: US-JNJFOC-20120813378

PATIENT
  Age: 12 Year
  Weight: 47.8 kg

DRUGS (2)
  1. DURAGESIC [Suspect]
     Indication: DRUG WITHDRAWAL SYNDROME
     Route: 062
  2. FENTANYL CITRATE [Suspect]
     Indication: PRODUCT USED FOR UNKNOWN INDICATION
     Dosage: the dose was tapered down gradually by 10-20 percent every 12-24 hours
     Route: 042

REACTIONS (1)
  - Off label use [Unknown]
